FAERS Safety Report 8472685-4 (Version None)
Quarter: 2012Q2

REPORT INFORMATION
  Report Type: 
  Country: None (occurrence: None)
  Receive Date: 20120627
  Receipt Date: 20120615
  Transmission Date: 20120825
  Serious: No
  Sender: FDA-Public Use
  Company Number: US-ASTRAZENECA-2012SE41990

PATIENT
  Sex: Male

DRUGS (8)
  1. PRILOSEC [Suspect]
     Indication: DYSPEPSIA
     Dosage: UNKNOWN
     Route: 048
     Dates: start: 20111001
  2. TROSPIUM CHLORIDE [Suspect]
     Dosage: UNKNOWN
  3. VIAGRA [Suspect]
  4. VESICARE [Suspect]
     Indication: MICTURITION URGENCY
     Route: 048
  5. VESICARE [Suspect]
     Route: 048
     Dates: start: 20120301
  6. METAMUCIL-2 [Concomitant]
     Dosage: UNKNOWN
  7. PRILOSEC OTC [Suspect]
     Indication: DYSPEPSIA
     Dosage: UNKNOWN
     Route: 048
  8. CIALIS [Suspect]
     Dosage: UNKNOWN

REACTIONS (6)
  - NAUSEA [None]
  - ARTHRALGIA [None]
  - VOMITING [None]
  - CONDITION AGGRAVATED [None]
  - FLATULENCE [None]
  - DIARRHOEA [None]
